FAERS Safety Report 5023126-0 (Version None)
Quarter: 2006Q2

REPORT INFORMATION
  Report Type: 
  Country: None (occurrence: None)
  Receive Date: 20060605
  Receipt Date: 20060519
  Transmission Date: 20061013
  Serious: Yes (Congenital Anomaly)
  Sender: FDA-Public Use
  Company Number: IN200605004761

PATIENT
  Sex: 0
  Weight: 2.2 kg

DRUGS (1)
  1. OLANZAPINE [Suspect]
     Dosage: TRANSPLACENTAL
     Route: 064

REACTIONS (4)
  - CONGENITAL EYELID MALFORMATION [None]
  - DRUG EXPOSURE DURING PREGNANCY [None]
  - MENINGOCELE [None]
  - SMALL FOR DATES BABY [None]
